FAERS Safety Report 15532489 (Version 1)
Quarter: 2018Q4

REPORT INFORMATION
  Report Type: Spontaneous
  Country: US (occurrence: US)
  Receive Date: 20181019
  Receipt Date: 20181019
  Transmission Date: 20190205
  Serious: Yes (Other)
  Sender: FDA-Public Use
  Company Number: US-ARBOR PHARMACEUTICALS, LLC-US-2018ARB001033

PATIENT
  Age: 13 Year
  Sex: Male

DRUGS (1)
  1. EVEKEO [Suspect]
     Active Substance: AMPHETAMINE SULFATE
     Indication: PRODUCT USED FOR UNKNOWN INDICATION
     Dosage: UNK

REACTIONS (5)
  - Heart rate increased [Unknown]
  - Cold sweat [Unknown]
  - Headache [Unknown]
  - Loss of consciousness [Unknown]
  - Feeling abnormal [Unknown]
